FAERS Safety Report 9730690 (Version 2)
Quarter: 2013Q4

REPORT INFORMATION
  Report Type: Spontaneous
  Country: CH (occurrence: CH)
  Receive Date: 20131202
  Receipt Date: 20131202
  Transmission Date: 20140711
  Serious: Yes (Hospitalization, Other)
  Sender: FDA-Public Use
  Company Number: CH-BMSGILMSD-2013-0087193

PATIENT
  Age: 33 Year
  Sex: Male

DRUGS (1)
  1. ATRIPLA [Suspect]
     Indication: HIV INFECTION
     Dosage: UNK
     Dates: start: 201104

REACTIONS (16)
  - Social avoidant behaviour [Recovered/Resolved]
  - Panic attack [Recovered/Resolved]
  - Pupils unequal [Recovered/Resolved]
  - Genetic polymorphism [Unknown]
  - Drug level increased [Recovered/Resolved]
  - Paranoia [Recovered/Resolved]
  - Abnormal dreams [Recovered/Resolved]
  - Flushing [Recovered/Resolved]
  - Cognitive disorder [Recovered/Resolved]
  - Confusional state [Recovered/Resolved]
  - Dizziness [Recovered/Resolved]
  - Hallucination [Recovered/Resolved]
  - Cerebellar syndrome [Recovered/Resolved]
  - Amnesia [Recovered/Resolved]
  - Aggression [Recovered/Resolved]
  - Psychotic disorder [Recovered/Resolved]
